FAERS Safety Report 4448833-X (Version None)
Quarter: 2004Q3

REPORT INFORMATION
  Report Type: 
  Country: None (occurrence: None)
  Receive Date: 20040909
  Receipt Date: 20040823
  Transmission Date: 20050211
  Serious: Yes (Other)
  Sender: FDA-Public Use
  Company Number: DSA_24877_2004

PATIENT
  Age: 81 Year
  Sex: Male
  Weight: 72.5755 kg

DRUGS (4)
  1. VASOTEC [Suspect]
     Dosage: 20 MG Q DAY PO
     Route: 048
     Dates: start: 20040703, end: 20040717
  2. PRINZIDE [Suspect]
     Indication: HYPERTENSION
     Dosage: 1 TAB Q DAY PO
     Route: 048
     Dates: start: 20020101, end: 20040703
  3. ALLOPURINOL [Concomitant]
  4. LEVOTHYROXINE SODIUM [Concomitant]

REACTIONS (3)
  - BRADYCARDIA [None]
  - CARDIAC OUTPUT DECREASED [None]
  - DIZZINESS POSTURAL [None]
